FAERS Safety Report 22630884 (Version 1)
Quarter: 2023Q2

REPORT INFORMATION
  Report Type: Spontaneous
  Country: GB (occurrence: GB)
  Receive Date: 20230622
  Receipt Date: 20230622
  Transmission Date: 20230722
  Serious: Yes (Death, Hospitalization, Other)
  Sender: FDA-Public Use
  Company Number: GB-GILEAD-2023-0633734

PATIENT
  Sex: Male

DRUGS (1)
  1. TECARTUS [Suspect]
     Active Substance: BREXUCABTAGENE AUTOLEUCEL
     Indication: B-cell type acute leukaemia
     Route: 065

REACTIONS (4)
  - Immune effector cell-associated neurotoxicity syndrome [Fatal]
  - Brain oedema [Fatal]
  - Cytokine release syndrome [Unknown]
  - Brain injury [Unknown]

NARRATIVE: CASE EVENT DATE: 20230619
